FAERS Safety Report 7106069-8 (Version None)
Quarter: 2010Q4

REPORT INFORMATION
  Report Type: 
  Country: None (occurrence: None)
  Receive Date: 20101116
  Receipt Date: 20101110
  Transmission Date: 20110411
  Serious: Yes (Other)
  Sender: FDA-Public Use
  Company Number: CL-PFIZER INC-2010111862

PATIENT
  Age: 75 Year
  Sex: Female

DRUGS (3)
  1. CARDURA [Suspect]
     Indication: HYPERTENSION
     Dosage: UNK
     Route: 048
     Dates: start: 20100816, end: 20100827
  2. ASPIRIN [Concomitant]
     Dosage: 500 MG, 1X/DAY
     Route: 048
  3. LOSARTAN [Concomitant]
     Dosage: UNK
     Route: 048
     Dates: start: 20080101

REACTIONS (6)
  - ABDOMINAL DISTENSION [None]
  - ABDOMINAL PAIN [None]
  - ARTHRALGIA [None]
  - FLATULENCE [None]
  - MYALGIA [None]
  - URINARY INCONTINENCE [None]
